FAERS Safety Report 6249240-X (Version None)
Quarter: 2009Q2

REPORT INFORMATION
  Report Type: 
  Country: None (occurrence: None)
  Receive Date: 20090624
  Receipt Date: 20090624
  Transmission Date: 20091009
  Serious: No
  Sender: FDA-Public Use
  Company Number: None

PATIENT
  Age: 48 Year
  Sex: Male
  Weight: 83.9154 kg

DRUGS (1)
  1. ALDARA [Suspect]
     Indication: ANOGENITAL WARTS
     Dosage: 0.25G 3X PER WEEK TOP
     Route: 061
     Dates: start: 20090601, end: 20090612

REACTIONS (6)
  - CHILLS [None]
  - FATIGUE [None]
  - INCREASED UPPER AIRWAY SECRETION [None]
  - MALAISE [None]
  - PAIN [None]
  - PYREXIA [None]
